FAERS Safety Report 9241860 (Version 3)
Quarter: 2014Q1

REPORT INFORMATION
  Report Type: Report from Study
  Country: CA (occurrence: CA)
  Receive Date: 20130419
  Receipt Date: 20140204
  Transmission Date: 20141002
  Serious: Yes (Other)
  Sender: FDA-Public Use
  Company Number: CA-ROCHE-1154818

PATIENT
  Sex: Female

DRUGS (15)
  1. RITUXAN [Suspect]
     Indication: SJOGREN^S SYNDROME
     Dosage: LAST DOSE RECEIVED: 03/MAY/2012
     Route: 042
     Dates: start: 20111027
  2. RITUXAN [Suspect]
     Dosage: LAST DOSE RECEIVED: 15/JAN/2014
     Route: 042
     Dates: start: 20130627
  3. RITUXAN [Suspect]
     Route: 042
     Dates: start: 20130328
  4. ATIVAN [Suspect]
     Indication: INSOMNIA
     Route: 065
     Dates: end: 20140123
  5. PREDNISONE [Concomitant]
     Dosage: 1 1/2 TABLET
     Route: 065
  6. SALAGEN [Concomitant]
     Dosage: 2 TABLET
     Route: 065
  7. FLEXERIL (CANADA) [Concomitant]
     Route: 065
  8. DIPHENHYDRAMINE HCL [Concomitant]
     Indication: PREMEDICATION
     Route: 048
     Dates: start: 20111027
  9. ACETAMINOPHEN [Concomitant]
     Indication: PREMEDICATION
     Route: 048
     Dates: start: 20111027
  10. ACETAMINOPHEN [Concomitant]
     Route: 048
     Dates: start: 20111109
  11. ACETAMINOPHEN [Concomitant]
     Route: 048
     Dates: start: 20130627
  12. ACETAMINOPHEN [Concomitant]
     Route: 048
     Dates: start: 20121108
  13. METHYLPREDNISOLONE [Concomitant]
     Indication: PREMEDICATION
     Route: 042
     Dates: start: 20111027
  14. METHYLPREDNISOLONE [Concomitant]
     Route: 042
     Dates: start: 20120419
  15. NAPROXEN [Concomitant]
     Route: 065

REACTIONS (11)
  - Drug effect decreased [Unknown]
  - Mobility decreased [Unknown]
  - Generalised oedema [Recovered/Resolved]
  - Rash [Unknown]
  - Musculoskeletal stiffness [Not Recovered/Not Resolved]
  - Erythema [Recovered/Resolved]
  - Skin burning sensation [Recovered/Resolved]
  - Dizziness [Unknown]
  - Headache [Recovered/Resolved]
  - Insomnia [Unknown]
  - Off label use [Unknown]
